FAERS Safety Report 25638686 (Version 1)
Quarter: 2025Q3

REPORT INFORMATION
  Report Type: Other
  Country: US (occurrence: US)
  Receive Date: 20250804
  Receipt Date: 20250804
  Transmission Date: 20251021
  Serious: Yes (Hospitalization, Other)
  Sender: CB FLEET
  Company Number: US-PRESTIGE-202507-US-002329

PATIENT
  Age: 57 Year
  Sex: Female

DRUGS (1)
  1. PHENAZOPYRIDINE HYDROCHLORIDE [Suspect]
     Active Substance: PHENAZOPYRIDINE HYDROCHLORIDE
     Indication: Dysuria
     Route: 048

REACTIONS (1)
  - Sulphaemoglobinaemia [Recovered/Resolved]
